FAERS Safety Report 7956572-3 (Version None)
Quarter: 2011Q4

REPORT INFORMATION
  Report Type: 
  Country: None (occurrence: None)
  Receive Date: 20111205
  Receipt Date: 20111122
  Transmission Date: 20120403
  Serious: Yes (Other)
  Sender: FDA-Public Use
  Company Number: US-ENDO PHARMACEUTICALS INC.-PROP20110323

PATIENT
  Sex: Male

DRUGS (1)
  1. PROPOXYPHENE NAPSYLATE W/ ACETAMINOPHEN [Suspect]
     Indication: PAIN
     Dosage: UNK
     Route: 048

REACTIONS (4)
  - ATRIAL FIBRILLATION [None]
  - ARRHYTHMIA [None]
  - ANGINA PECTORIS [None]
  - TACHYCARDIA [None]
